FAERS Safety Report 22175487 (Version 3)
Quarter: 2023Q4

REPORT INFORMATION
  Report Type: Spontaneous
  Country: US (occurrence: US)
  Receive Date: 20230405
  Receipt Date: 20231019
  Transmission Date: 20240110
  Serious: Yes (Other)
  Sender: FDA-Public Use
  Company Number: US-PFIZER INC-PV202300061022

PATIENT
  Age: 73 Year
  Sex: Female
  Weight: 72 kg

DRUGS (3)
  1. IBRANCE [Suspect]
     Active Substance: PALBOCICLIB
     Indication: Breast cancer female
     Dosage: 125 MG, CYCLIC (TAKE ON DAYS 1 THROUGH 21 (FOLLOWED BY 7 DAYS OFF TREATMENT) WITH FOOD
     Route: 048
     Dates: start: 20230122
  2. LETROZOLE [Concomitant]
     Active Substance: LETROZOLE
     Dosage: UNK
     Dates: start: 20230122
  3. ALDACTONE [Concomitant]
     Active Substance: SPIRONOLACTONE
     Dosage: 12.5 MG, DAILY
     Route: 048
     Dates: start: 20230309

REACTIONS (8)
  - Spondylitis [Recovering/Resolving]
  - Back pain [Unknown]
  - Neoplasm progression [Unknown]
  - Diarrhoea [Unknown]
  - Diverticulum [Unknown]
  - Abdominal discomfort [Unknown]
  - Loss of libido [Unknown]
  - Irritable bowel syndrome [Unknown]
